FAERS Safety Report 6108566-0 (Version None)
Quarter: 2009Q1

REPORT INFORMATION
  Report Type: 
  Country: None (occurrence: None)
  Receive Date: 20090309
  Receipt Date: 20090225
  Transmission Date: 20090719
  Serious: Yes (Hospitalization)
  Sender: FDA-Public Use
  Company Number: JP-JNJCH-2009005906

PATIENT

DRUGS (3)
  1. ASPIRIN [Suspect]
     Indication: DRUG USE FOR UNKNOWN INDICATION
     Dosage: TEXT:81 T0 100 MG/DAY
     Route: 065
  2. FAMOTIDINE [Suspect]
     Indication: DRUG USE FOR UNKNOWN INDICATION
     Dosage: TEXT:40 MG DAILY
     Route: 065
  3. LOXOPROFEN [Suspect]
     Indication: HEADACHE
     Dosage: TEXT:UNSPECIFIED
     Route: 065

REACTIONS (2)
  - HEADACHE [None]
  - PEPTIC ULCER [None]
